FAERS Safety Report 10566540 (Version 1)
Quarter: 2014Q4

REPORT INFORMATION
  Report Type: Spontaneous
  Country: AE (occurrence: JO)
  Receive Date: 20141105
  Receipt Date: 20141105
  Transmission Date: 20150529
  Serious: Yes (Hospitalization)
  Sender: FDA-Public Use
  Company Number: AE-PFIZER INC-2014303080

PATIENT
  Age: 15 Year
  Sex: Female

DRUGS (1)
  1. LYRICA [Suspect]
     Active Substance: PREGABALIN
     Indication: SUBSTANCE USE
     Dosage: 14 ^TABLETS^ IN ONE TIME

REACTIONS (4)
  - Loss of consciousness [Unknown]
  - Drug abuse [Unknown]
  - Seizure [Unknown]
  - Intentional overdose [Unknown]
